FAERS Safety Report 7246487-0 (Version None)
Quarter: 2011Q1

REPORT INFORMATION
  Report Type: 
  Country: None (occurrence: None)
  Receive Date: 20110126
  Receipt Date: 20110113
  Transmission Date: 20110831
  Serious: Yes (Hospitalization)
  Sender: FDA-Public Use
  Company Number: ES-BAYER-2011-003736

PATIENT
  Age: 84 Year
  Sex: Female

DRUGS (5)
  1. CLOPIDOGREL [Suspect]
     Route: 065
     Dates: start: 20090101
  2. ASPIRIN [Suspect]
     Route: 065
     Dates: start: 20090101
  3. CIPROFLOXACIN [Suspect]
     Route: 065
     Dates: start: 20090101
  4. ALLOPURINOL [Suspect]
     Indication: HYPERURICAEMIA
     Route: 048
     Dates: start: 20090101, end: 20091101
  5. ALDACTONE [Suspect]

REACTIONS (8)
  - OLIGURIA [None]
  - GENERAL PHYSICAL HEALTH DETERIORATION [None]
  - SUPERINFECTION [None]
  - DYSPNOEA [None]
  - TOXIC SKIN ERUPTION [None]
  - SKIN LESION [None]
  - HYPOTENSION [None]
  - ALTERED STATE OF CONSCIOUSNESS [None]
